FAERS Safety Report 6342825-1 (Version None)
Quarter: 2009Q3

REPORT INFORMATION
  Report Type: 
  Country: None (occurrence: None)
  Receive Date: 20090908
  Receipt Date: 20090901
  Transmission Date: 20100115
  Serious: Yes (Other)
  Sender: FDA-Public Use
  Company Number: JP-JNJFOC-20090806936

PATIENT
  Age: 40 Year
  Sex: Female

DRUGS (1)
  1. RISPERDAL [Suspect]
     Indication: DRUG USE FOR UNKNOWN INDICATION
     Route: 048

REACTIONS (5)
  - AMENORRHOEA [None]
  - CONSTIPATION [None]
  - DYSURIA [None]
  - OBESITY [None]
  - URINARY RETENTION [None]
